FAERS Safety Report 14536951 (Version 1)
Quarter: 2018Q1

REPORT INFORMATION
  Report Type: Spontaneous
  Country: US (occurrence: US)
  Receive Date: 20180215
  Receipt Date: 20180215
  Transmission Date: 20180509
  Serious: No
  Sender: FDA-Public Use
  Company Number: US-009507513-1802USA008128

PATIENT
  Age: 42 Year
  Sex: Female

DRUGS (1)
  1. NEXPLANON [Suspect]
     Active Substance: ETONOGESTREL
     Dosage: UNK
     Route: 059
     Dates: start: 20180108

REACTIONS (3)
  - Device breakage [Unknown]
  - Device kink [Unknown]
  - No adverse event [Unknown]

NARRATIVE: CASE EVENT DATE: 20180213
